FAERS Safety Report 16301950 (Version 2)
Quarter: 2020Q4

REPORT INFORMATION
  Report Type: Spontaneous
  Country: US (occurrence: US)
  Receive Date: 20190512
  Receipt Date: 20201120
  Transmission Date: 20210113
  Serious: Yes (Other)
  Sender: FDA-Public Use
  Company Number: PHEH2019US020147

PATIENT
  Age: 69 Year
  Sex: Female

DRUGS (1)
  1. TASIGNA [Suspect]
     Active Substance: NILOTINIB
     Indication: CHRONIC MYELOID LEUKAEMIA
     Dosage: 300 MG, BID
     Route: 048
     Dates: start: 201402, end: 201710

REACTIONS (50)
  - Oedema peripheral [Unknown]
  - Coronary artery disease [Unknown]
  - Anxiety [Unknown]
  - Urinary retention [Unknown]
  - Neuropathy peripheral [Unknown]
  - Cerumen impaction [Unknown]
  - Osteoporosis [Unknown]
  - Peripheral ischaemia [Unknown]
  - Dyslipidaemia [Unknown]
  - Nephrolithiasis [Unknown]
  - Sepsis [Unknown]
  - Myocardial infarction [Unknown]
  - Peripheral vascular disorder [Unknown]
  - Diabetic foot [Unknown]
  - Hyperparathyroidism [Unknown]
  - Gout [Unknown]
  - Nausea [Unknown]
  - Peripheral arterial occlusive disease [Unknown]
  - Injury [Unknown]
  - Hyperparathyroidism secondary [Unknown]
  - Metatarsalgia [Unknown]
  - Nephrogenic anaemia [Unknown]
  - Intervertebral disc degeneration [Unknown]
  - Gastrooesophageal reflux disease [Unknown]
  - Pain [Unknown]
  - Hypertension [Unknown]
  - Vitamin B12 deficiency [Unknown]
  - Pyrexia [Unknown]
  - Diverticulitis [Unknown]
  - End stage renal disease [Unknown]
  - Cerebrovascular accident [Unknown]
  - Arthralgia [Unknown]
  - Pain in extremity [Unknown]
  - Vomiting [Unknown]
  - Pancytopenia [Unknown]
  - Hallucination [Unknown]
  - Balance disorder [Unknown]
  - Calculus urinary [Unknown]
  - Cardiac disorder [Unknown]
  - Arteriosclerosis coronary artery [Unknown]
  - Back pain [Unknown]
  - Urinary tract infection [Unknown]
  - Emotional distress [Unknown]
  - Hypertensive nephropathy [Unknown]
  - Respiratory failure [Unknown]
  - Chronic kidney disease [Unknown]
  - Diabetes mellitus [Unknown]
  - Epicondylitis [Unknown]
  - Osteoarthritis [Unknown]
  - Vitamin D deficiency [Unknown]

NARRATIVE: CASE EVENT DATE: 20140619
